FAERS Safety Report 17639680 (Version 1)
Quarter: 2020Q2

REPORT INFORMATION
  Report Type: Spontaneous
  Country: US (occurrence: US)
  Receive Date: 20200407
  Receipt Date: 20200407
  Transmission Date: 20200713
  Serious: No
  Sender: FDA-Public Use
  Company Number: US-009507513-2004USA001721

PATIENT
  Sex: Female
  Weight: 83.91 kg

DRUGS (18)
  1. LENVATINIB MESYLATE [Suspect]
     Active Substance: LENVATINIB MESYLATE
     Indication: ENDOMETRIAL CANCER
     Dosage: 10 MILLIGRAM, QD
     Route: 048
     Dates: start: 20200311
  2. GASTROINTESTINAL PREPARATIONS (UNSPECIFIED) [Concomitant]
     Active Substance: UNSPECIFIED INGREDIENT
  3. ASCORBIC ACID. [Concomitant]
     Active Substance: ASCORBIC ACID
  4. LYSINE [Concomitant]
     Active Substance: LYSINE
  5. PROCHLORPERAZINE. [Concomitant]
     Active Substance: PROCHLORPERAZINE
  6. KEYTRUDA [Suspect]
     Active Substance: PEMBROLIZUMAB
  7. CYANOCOBALAMIN. [Concomitant]
     Active Substance: CYANOCOBALAMIN
  8. HUMALOG [Concomitant]
     Active Substance: INSULIN LISPRO
     Dosage: VIAL
  9. LANTUS [Concomitant]
     Active Substance: INSULIN GLARGINE
     Dosage: VIAL
  10. LORAZEPAM. [Concomitant]
     Active Substance: LORAZEPAM
  11. SYNTHROID [Concomitant]
     Active Substance: LEVOTHYROXINE SODIUM
  12. ONDANSETRON [Concomitant]
     Active Substance: ONDANSETRON
  13. ZOCOR [Concomitant]
     Active Substance: SIMVASTATIN
     Route: 048
  14. PYRIDOXINE [Concomitant]
     Active Substance: PYRIDOXINE
  15. IBUPROFEN. [Concomitant]
     Active Substance: IBUPROFEN
  16. OCUVITE ADULT 50 PLUS [Concomitant]
  17. CITRACAL + D [Concomitant]
     Active Substance: CALCIUM CITRATE\VITAMIN D
  18. ACYCLOVIR. [Concomitant]
     Active Substance: ACYCLOVIR

REACTIONS (2)
  - Nausea [Unknown]
  - Fatigue [Unknown]
